FAERS Safety Report 20190293 (Version 1)
Quarter: 2021Q4

REPORT INFORMATION
  Report Type: Spontaneous
  Country: JP (occurrence: JP)
  Receive Date: 20211215
  Receipt Date: 20211215
  Transmission Date: 20220304
  Serious: Yes (Hospitalization)
  Sender: FDA-Public Use
  Company Number: JP-ferring-EVA202101776FERRINGPH

PATIENT
  Age: 68 Year
  Sex: Female

DRUGS (1)
  1. DESMOPRESSIN ACETATE [Suspect]
     Active Substance: DESMOPRESSIN ACETATE
     Indication: Diabetes insipidus
     Dosage: 60 MG, 2 TIMES DAILY; AT 10:00 IN THE MORNING AND BEFORE BEDTIME
     Route: 065

REACTIONS (1)
  - Cerebral infarction [Unknown]
